FAERS Safety Report 24710734 (Version 1)
Quarter: 2024Q4

REPORT INFORMATION
  Report Type: Spontaneous
  Country: BG (occurrence: BG)
  Receive Date: 20241209
  Receipt Date: 20241209
  Transmission Date: 20250114
  Serious: Yes (Other)
  Sender: BRISTOL-MYERS SQUIBB COMPANY
  Company Number: BG-BRISTOL-MYERS SQUIBB COMPANY-2024-187401

PATIENT
  Age: 69 Year
  Sex: Male

DRUGS (5)
  1. OPDIVO [Suspect]
     Active Substance: NIVOLUMAB
     Indication: Renal cell carcinoma
     Route: 042
     Dates: start: 20240104
  2. OPDIVO [Suspect]
     Active Substance: NIVOLUMAB
     Route: 042
  3. YERVOY [Suspect]
     Active Substance: IPILIMUMAB
     Indication: Renal cell carcinoma
     Route: 042
     Dates: start: 20240104
  4. XGEVA [Concomitant]
     Active Substance: DENOSUMAB
     Indication: Renal cell carcinoma
     Dates: start: 20240104
  5. XGEVA [Concomitant]
     Active Substance: DENOSUMAB

REACTIONS (5)
  - Back pain [Recovered/Resolved]
  - Musculoskeletal chest pain [Recovered/Resolved]
  - Disseminated intravascular coagulation [Unknown]
  - Anaemia [Recovered/Resolved]
  - Tumour pseudoprogression [Recovering/Resolving]

NARRATIVE: CASE EVENT DATE: 20240401
